FAERS Safety Report 8955940 (Version 3)
Quarter: 2012Q4

REPORT INFORMATION
  Report Type: 
  Country: JP (occurrence: JP)
  Receive Date: 20121210
  Receipt Date: 20121226
  Transmission Date: 20130627
  Serious: Yes (Hospitalization)
  Sender: FDA-Public Use
  Company Number: JP-JNJFOC-20121201708

PATIENT
  Age: 35 Year
  Sex: Male

DRUGS (2)
  1. FINIBAX [Suspect]
     Indication: APPENDICITIS
     Route: 041
     Dates: start: 20121116, end: 20121119
  2. FLUMARIN [Suspect]
     Indication: APPENDICITIS
     Route: 041
     Dates: start: 20121115, end: 20121116

REACTIONS (3)
  - Liver disorder [Recovering/Resolving]
  - Pruritus [Recovered/Resolved]
  - Hepatic steatosis [Unknown]
